FAERS Safety Report 11854155 (Version 1)
Quarter: 2015Q4

REPORT INFORMATION
  Report Type: Spontaneous
  Country: US (occurrence: US)
  Receive Date: 20151220
  Receipt Date: 20151220
  Transmission Date: 20160305
  Serious: Yes (Death)
  Sender: FDA-Public Use
  Company Number: US-PAR PHARMACEUTICAL COMPANIES-2015SCPR014802

PATIENT
  Age: 18 Year
  Sex: Male

DRUGS (1)
  1. TRAMADOL. [Suspect]
     Active Substance: TRAMADOL
     Indication: PRODUCT USE ISSUE
     Dosage: UNK, UNKNOWN, INHAL

REACTIONS (3)
  - Death [Fatal]
  - Drug abuse [Fatal]
  - Poisoning [None]

NARRATIVE: CASE EVENT DATE: 2014
